FAERS Safety Report 7065380-X (Version None)
Quarter: 2010Q4

REPORT INFORMATION
  Report Type: 
  Country: None (occurrence: None)
  Receive Date: 20101027
  Receipt Date: 20101020
  Transmission Date: 20110411
  Serious: Yes (Hospitalization, Other)
  Sender: FDA-Public Use
  Company Number: CHPA2010US16161

PATIENT
  Age: 49 Year
  Sex: Female
  Weight: 72.562 kg

DRUGS (4)
  1. MAALOX TOTAL RELIEF (NCH) [Suspect]
     Indication: FLATULENCE
     Dosage: 30 ML, QD
     Route: 048
  2. MAALOX TOTAL RELIEF (NCH) [Suspect]
     Indication: NAUSEA
  3. MAALOX TOTAL RELIEF (NCH) [Suspect]
     Indication: SENSATION OF PRESSURE
  4. MAALOX TOTAL RELIEF (NCH) [Suspect]
     Indication: ABDOMINAL DISTENSION

REACTIONS (1)
  - GALLBLADDER OPERATION [None]
